FAERS Safety Report 18611228 (Version 1)
Quarter: 2020Q4

REPORT INFORMATION
  Report Type: Spontaneous
  Country: US (occurrence: US)
  Receive Date: 20201214
  Receipt Date: 20201214
  Transmission Date: 20210114
  Serious: Yes (Death)
  Sender: FDA-Public Use
  Company Number: None

PATIENT
  Sex: Male
  Weight: 101.7 kg

DRUGS (9)
  1. LYSTEDA [Concomitant]
     Active Substance: TRANEXAMIC ACID
  2. CHLORHEXIDINE [Concomitant]
     Active Substance: CHLORHEXIDINE
  3. OXYCODONE [Concomitant]
     Active Substance: OXYCODONE
  4. REBLOZYL [Suspect]
     Active Substance: LUSPATERCEPT-AAMT
     Indication: ACUTE MYELOID LEUKAEMIA
     Dates: start: 20200529
  5. CHLORTHALIDONE. [Concomitant]
     Active Substance: CHLORTHALIDONE
  6. ONDANSETRON [Concomitant]
     Active Substance: ONDANSETRON
  7. RETACRIT [Concomitant]
     Active Substance: EPOETIN ALFA-EPBX
  8. IBUPROFEN. [Concomitant]
     Active Substance: IBUPROFEN
  9. REBLOZYL [Suspect]
     Active Substance: LUSPATERCEPT-AAMT
     Indication: ACUTE MYELOID LEUKAEMIA
     Dates: start: 20200529

REACTIONS (1)
  - Death [None]
